FAERS Safety Report 10945099 (Version 2)
Quarter: 2015Q2

REPORT INFORMATION
  Report Type: Spontaneous
  Country: US (occurrence: None)
  Receive Date: 20150319
  Receipt Date: 20150403
  Transmission Date: 20150821
  Serious: Yes (Hospitalization, Other)
  Sender: FDA-Public Use
  Company Number: ADR-2015-00529

PATIENT
  Age: 22 Year
  Sex: Male

DRUGS (5)
  1. PERCOCET [Suspect]
     Active Substance: ACETAMINOPHEN\OXYCODONE HYDROCHLORIDE
  2. LACTULOSE. [Suspect]
     Active Substance: LACTULOSE
  3. LIORESAL [Suspect]
     Active Substance: BACLOFEN
     Indication: MUSCLE SPASTICITY
     Dates: start: 20150303
  4. COLACE [Suspect]
     Active Substance: DOCUSATE SODIUM
  5. PROTONIX [Suspect]
     Active Substance: PANTOPRAZOLE SODIUM

REACTIONS (9)
  - Headache [None]
  - Hiccups [None]
  - Depressed level of consciousness [None]
  - Device dislocation [None]
  - Post procedural complication [None]
  - Device breakage [None]
  - Device malfunction [None]
  - Neurological decompensation [None]
  - Cerebrospinal fluid leakage [None]

NARRATIVE: CASE EVENT DATE: 20150307
